FAERS Safety Report 8115110-5 (Version None)
Quarter: 2012Q1

REPORT INFORMATION
  Report Type: 
  Country: None (occurrence: None)
  Receive Date: 20120127
  Receipt Date: 20111229
  Transmission Date: 20120608
  Serious: Yes (Death)
  Sender: FDA-Public Use
  Company Number: GAM-001-12-HU

PATIENT
  Sex: Male

DRUGS (2)
  1. HUMAGLOBIN (HUMAN NORMAL IMMUNOGLOBULIN FOR INTRAVENOUS ADMINISTRATION [Suspect]
     Indication: HYPOGAMMAGLOBULINAEMIA
     Dosage: 400 MG/KG - 1 X 1 /MONTH INTRAVENOUS (NOT OTHERWISE SPECIFIED)
     Route: 042
  2. OCTAGAM [Suspect]
     Indication: HYPOGAMMAGLOBULINAEMIA
     Dosage: 400 MG/KG - 1 X 1 / MONTH INTRAVENOUS (NOT OTHERWISE SPECIFIED)
     Route: 042

REACTIONS (5)
  - NEURODEGENERATIVE DISORDER [None]
  - CEREBRAL ATROPHY [None]
  - CACHEXIA [None]
  - IMMOBILE [None]
  - BRAIN INJURY [None]
